FAERS Safety Report 12194696 (Version 4)
Quarter: 2016Q2

REPORT INFORMATION
  Report Type: Spontaneous
  Country: JP (occurrence: JP)
  Receive Date: 20160321
  Receipt Date: 20160601
  Transmission Date: 20160815
  Serious: Yes (Other)
  Sender: FDA-Public Use
  Company Number: JP-ELI_LILLY_AND_COMPANY-JP201603004464

PATIENT
  Age: 50 Year
  Sex: Male
  Weight: 57 kg

DRUGS (3)
  1. TAXOL [Suspect]
     Active Substance: PACLITAXEL
     Indication: GASTRIC CANCER RECURRENT
     Dosage: 135 MG, OTHER
     Route: 042
     Dates: start: 20151106, end: 20160212
  2. CYRAMZA [Suspect]
     Active Substance: RAMUCIRUMAB
     Dosage: 330 MG, OTHER
     Route: 042
     Dates: start: 20160311, end: 20160325
  3. CYRAMZA [Suspect]
     Active Substance: RAMUCIRUMAB
     Indication: GASTRIC CANCER RECURRENT
     Dosage: 445 MG, OTHER
     Route: 042
     Dates: start: 20151106, end: 20160212

REACTIONS (3)
  - Aspartate aminotransferase increased [Not Recovered/Not Resolved]
  - Hepatic function abnormal [Not Recovered/Not Resolved]
  - Alanine aminotransferase increased [Recovered/Resolved]

NARRATIVE: CASE EVENT DATE: 20160219
